FAERS Safety Report 6962586-2 (Version None)
Quarter: 2010Q3

REPORT INFORMATION
  Report Type: 
  Country: None (occurrence: None)
  Receive Date: 20100831
  Receipt Date: 20100823
  Transmission Date: 20110219
  Serious: Yes (Death, Hospitalization)
  Sender: FDA-Public Use
  Company Number: 2010US002919

PATIENT
  Age: 56 Year
  Sex: Female
  Weight: 63 kg

DRUGS (7)
  1. PROGRAF [Suspect]
     Indication: LIVER TRANSPLANT
     Dosage: 0.5 MG BID ORAL
     Route: 048
     Dates: start: 20070701
  2. CELLCEPT [Concomitant]
  3. LASIX [Concomitant]
  4. NORVASC [Concomitant]
  5. CELEXA (CELECOXIB) [Concomitant]
  6. ABILIFY [Concomitant]
  7. ALDACTONE [Concomitant]

REACTIONS (2)
  - PLEURAL EFFUSION [None]
  - TRANSPLANT FAILURE [None]
